FAERS Safety Report 12135099 (Version 2)
Quarter: 2016Q1

REPORT INFORMATION
  Report Type: Report from Study
  Country: US (occurrence: US)
  Receive Date: 20160301
  Receipt Date: 20160303
  Transmission Date: 20160526
  Serious: Yes (Life-Threatening, Hospitalization, Other)
  Sender: FDA-Public Use
  Company Number: US-TAKEDA-2016MPI001324

PATIENT
  Age: 44 Year
  Sex: Female
  Weight: 121.6 kg

DRUGS (9)
  1. FLAGYL [Concomitant]
     Active Substance: METRONIDAZOLE\METRONIDAZOLE HYDROCHLORIDE
     Dosage: 500 MG, Q8HR
     Route: 042
  2. AZACTAM [Concomitant]
     Active Substance: AZTREONAM
     Dosage: 2 G, Q6HR
     Route: 042
  3. ZOVIRAX [Concomitant]
     Active Substance: ACYCLOVIR
     Dosage: 400 MG, BID
     Route: 048
  4. MITOXANTRONE [Suspect]
     Active Substance: MITOXANTRONE HYDROCHLORIDE
     Indication: ACUTE MYELOID LEUKAEMIA
     Dosage: 14.04 MG, UNK
     Route: 042
  5. ETOPOSIDE. [Suspect]
     Active Substance: ETOPOSIDE
     Indication: ACUTE MYELOID LEUKAEMIA
     Dosage: 187.2 MG, UNK
     Route: 042
  6. IXAZOMIB [Suspect]
     Active Substance: IXAZOMIB
     Indication: ACUTE MYELOID LEUKAEMIA
     Dosage: 1 MG, UNK
     Route: 048
  7. CYTARABINE. [Suspect]
     Active Substance: CYTARABINE
     Indication: ACUTE MYELOID LEUKAEMIA
     Dosage: 2340 MG, UNK
     Route: 042
  8. VANCOMYCIN [Concomitant]
     Active Substance: VANCOMYCIN
     Dosage: 1.5 G, UNK
     Route: 042
  9. MERREM [Concomitant]
     Active Substance: MEROPENEM
     Dosage: 500 MG, Q6HR
     Route: 042

REACTIONS (2)
  - Respiratory failure [Unknown]
  - Bacterial sepsis [Unknown]

NARRATIVE: CASE EVENT DATE: 20160223
